FAERS Safety Report 8997464 (Version 1)
Quarter: 2013Q1

REPORT INFORMATION
  Report Type: Spontaneous
  Country: US (occurrence: US)
  Receive Date: 20130104
  Receipt Date: 20130104
  Transmission Date: 20140127
  Serious: Yes (Hospitalization)
  Sender: FDA-Public Use
  Company Number: US-009507513-1301USA001296

PATIENT
  Age: 61 Year
  Sex: Female

DRUGS (6)
  1. SINGULAIR [Suspect]
     Dosage: 10 MG, QD
     Route: 048
  2. ZYRTEC [Suspect]
     Dosage: 10 MG, QD
     Route: 048
  3. FLUTICASONE [Concomitant]
  4. IPRATROPIUM BROMIDE [Concomitant]
  5. ALBUTEROL SULFATE [Concomitant]
  6. ACETAMINOPHEN (+) CODEINE [Concomitant]

REACTIONS (1)
  - Retroperitoneal fibrosis [Unknown]
